FAERS Safety Report 24717505 (Version 2)
Quarter: 2024Q4

REPORT INFORMATION
  Report Type: Spontaneous
  Country: IT (occurrence: IT)
  Receive Date: 20241210
  Receipt Date: 20241211
  Transmission Date: 20250114
  Serious: Yes (Life-Threatening, Hospitalization)
  Sender: NOVARTIS
  Company Number: IT-002147023-NVSC2024IT234278

PATIENT
  Age: 77 Year
  Sex: Male

DRUGS (1)
  1. SACUBITRIL\VALSARTAN [Suspect]
     Active Substance: SACUBITRIL\VALSARTAN
     Indication: Cardiac failure
     Dosage: UNK, ADMINISTERED AT HIGHEST DOSE
     Route: 065

REACTIONS (1)
  - Vasoplegia syndrome [Recovered/Resolved]
